FAERS Safety Report 19053335 (Version 1)
Quarter: 2021Q1

REPORT INFORMATION
  Report Type: Spontaneous
  Country: US (occurrence: US)
  Receive Date: 20210324
  Receipt Date: 20210324
  Transmission Date: 20210420
  Serious: No
  Sender: FDA-Public Use
  Company Number: US-PFIZER INC-2021236042

PATIENT
  Age: 57 Year
  Sex: Female

DRUGS (1)
  1. XELJANZ [Suspect]
     Active Substance: TOFACITINIB CITRATE
     Dosage: 5 MG
     Dates: start: 202012

REACTIONS (5)
  - Abdominal discomfort [Unknown]
  - Dry mouth [Unknown]
  - Drug hypersensitivity [Unknown]
  - Diarrhoea [Unknown]
  - Abnormal faeces [Unknown]
